FAERS Safety Report 11889835 (Version 1)
Quarter: 2016Q1

REPORT INFORMATION
  Report Type: Spontaneous
  Country: GB (occurrence: GB)
  Receive Date: 20160105
  Receipt Date: 20160105
  Transmission Date: 20160526
  Serious: Yes (Disabling)
  Sender: FDA-Public Use
  Company Number: GB-TEVA-622636ACC

PATIENT
  Age: 31 Year
  Sex: Female
  Weight: 62 kg

DRUGS (19)
  1. IBUPROFEN. [Concomitant]
     Active Substance: IBUPROFEN
     Dosage: 3 DOSAGE FORMS DAILY; WITH OR AFTER FOOD; DAILY DOSE: 3DF
     Dates: start: 20151130
  2. CHLORPHENAMINE [Concomitant]
     Active Substance: CHLORPHENIRAMINE MALEATE
     Dosage: 2 DOSAGE FORMS DAILY;
     Dates: start: 20151020, end: 20151024
  3. CLENIL MODULITE [Concomitant]
     Active Substance: BECLOMETHASONE DIPROPIONATE
     Dosage: 4 DOSAGE FORMS DAILY;
     Dates: start: 20150605
  4. PARACETAMOL [Concomitant]
     Active Substance: ACETAMINOPHEN
     Dosage: TAKE 1 OR 2 4 TIMES/DAY
     Dates: start: 20151130, end: 20151204
  5. PHENOXYMETHYLPENICILLIN [Concomitant]
     Active Substance: PENICILLIN V
     Dosage: 8 DOSAGE FORMS DAILY;
     Dates: start: 20151021, end: 20151028
  6. PROPRANOLOL [Suspect]
     Active Substance: PROPRANOLOL\PROPRANOLOL HYDROCHLORIDE
     Dates: start: 20151218
  7. FLUCLOXACILLIN [Concomitant]
     Active Substance: FLUCLOXACILLIN
     Dosage: 4 DOSAGE FORMS DAILY;
     Dates: start: 20151021, end: 20151028
  8. SEEBRI BREEZHALER [Concomitant]
     Active Substance: GLYCOPYRROLATE
     Dosage: 1 DOSAGE FORMS DAILY;
     Route: 055
     Dates: start: 20150605
  9. ZOPICLONE [Concomitant]
     Active Substance: ZOPICLONE
     Dosage: 1 DOSAGE FORMS DAILY; AT NIGHT; DAILY DOSE: 1DF
     Dates: start: 20151216
  10. CHLORPROMAZINE. [Concomitant]
     Active Substance: CHLORPROMAZINE
     Dosage: 2.5ML IN THE MORNING AND LUNCHTIME AND 5ML AT NIGHT AS REQUIRED
     Dates: start: 20151111, end: 20151112
  11. CO-AMOXICLAV [Concomitant]
     Active Substance: AMOXICILLIN\CLAVULANIC ACID
     Dosage: 3 DOSAGE FORMS DAILY;
     Dates: start: 20151130, end: 20151210
  12. MIRTAZAPINE. [Concomitant]
     Active Substance: MIRTAZAPINE
     Dosage: AT NIGHT
     Dates: start: 20150717
  13. SALBUTAMOL [Concomitant]
     Active Substance: ALBUTEROL
     Route: 055
     Dates: start: 20150605
  14. OLANZAPINE. [Concomitant]
     Active Substance: OLANZAPINE
     Dosage: 1 DOSAGE FORMS DAILY;
     Dates: start: 20151218
  15. RISPERIDONE. [Concomitant]
     Active Substance: RISPERIDONE
     Dosage: 1-2MG EACH DAY
     Dates: start: 20151208, end: 20151218
  16. BALNEUM [Concomitant]
     Dosage: USE AS DIRECTED
     Dates: start: 20151211, end: 20151212
  17. HEPARINOID [Concomitant]
     Active Substance: CHONDROITIN SULFATE (BOVINE)
     Dosage: 4 DOSAGE FORMS DAILY;
     Dates: start: 20151211, end: 20151212
  18. BETAMETHASONE VALERATE. [Concomitant]
     Active Substance: BETAMETHASONE VALERATE
     Dosage: USE AS DIRECTED
     Dates: start: 20151211
  19. METHADONE [Concomitant]
     Active Substance: METHADONE HYDROCHLORIDE
     Dosage: REDUCING DAILY DOSES: 87, 87, 87, 85, 85, 85, 8...
     Dates: start: 20150625

REACTIONS (1)
  - Muscle spasms [Recovered/Resolved]

NARRATIVE: CASE EVENT DATE: 20151218
